FAERS Safety Report 14312837 (Version 1)
Quarter: 2017Q4

REPORT INFORMATION
  Report Type: Spontaneous
  Country: SK (occurrence: SK)
  Receive Date: 20171221
  Receipt Date: 20171221
  Transmission Date: 20180321
  Serious: Yes (Life-Threatening, Hospitalization, Other)
  Sender: FDA-Public Use
  Company Number: SK-WEST-WARD PHARMACEUTICALS CORP.-SK-H14001-17-04997

PATIENT
  Age: 53 Year
  Sex: Female

DRUGS (9)
  1. CYCLOSPORINE. [Suspect]
     Active Substance: CYCLOSPORINE
     Indication: IMMUNOSUPPRESSION
  2. METHYLPREDNISOLONE. [Suspect]
     Active Substance: METHYLPREDNISOLONE
     Indication: IMMUNOSUPPRESSION
     Dosage: ()
     Route: 065
  3. NOREPINEPHRINE. [Concomitant]
     Active Substance: NOREPINEPHRINE
     Route: 041
  4. CYCLOSPORINE. [Suspect]
     Active Substance: CYCLOSPORINE
     Indication: IMMUNOSUPPRESSION
     Dosage: 25 MG-0-50 MG
     Route: 065
  5. MYCOPHENOLATE MOFETIL. [Suspect]
     Active Substance: MYCOPHENOLATE MOFETIL
     Indication: IMMUNOSUPPRESSION
     Route: 065
  6. MYCOPHENOLATE MOFETIL. [Suspect]
     Active Substance: MYCOPHENOLATE MOFETIL
     Indication: IMMUNOSUPPRESSION
  7. HYDROCORTISONE. [Concomitant]
     Active Substance: HYDROCORTISONE
     Indication: IMMUNOSUPPRESSION
     Route: 065
  8. NOREPINEPHRINE. [Concomitant]
     Active Substance: NOREPINEPHRINE
     Route: 065
  9. NOREPINEPHRINE. [Concomitant]
     Active Substance: NOREPINEPHRINE
     Indication: HYPOTENSION
     Route: 065

REACTIONS (14)
  - Multiple organ dysfunction syndrome [Recovered/Resolved]
  - Respiratory acidosis [Recovered/Resolved]
  - Staphylococcal infection [Unknown]
  - Septic shock [Recovered/Resolved]
  - Pericardial effusion [Unknown]
  - Pseudomonas infection [Unknown]
  - Tuberculosis gastrointestinal [Recovered/Resolved]
  - Acute respiratory distress syndrome [Recovered/Resolved]
  - Pneumothorax [Unknown]
  - Acute kidney injury [Recovered/Resolved]
  - Pulmonary tuberculosis [Unknown]
  - Bronchopulmonary aspergillosis [Unknown]
  - Metabolic acidosis [Recovered/Resolved]
  - Tuberculosis [Unknown]
